FAERS Safety Report 6975262-7 (Version None)
Quarter: 2010Q3

REPORT INFORMATION
  Report Type: 
  Country: None (occurrence: None)
  Receive Date: 20100910
  Receipt Date: 20090227
  Transmission Date: 20110219
  Serious: No
  Sender: FDA-Public Use
  Company Number: US-WYE-H08424609

PATIENT
  Age: 63 Year
  Sex: Female

DRUGS (3)
  1. PRISTIQ [Suspect]
     Indication: HOT FLUSH
     Dosage: UNKNOWN
     Route: 048
  2. PRISTIQ [Suspect]
     Dosage: ^CUT TABLET IN HALF FOR EVERY DAY^ PER HCP ORDER
     Route: 048
  3. PRISTIQ [Suspect]
     Dosage: ^CUT TABLET IN HALF EVERY OTHER DAY^ PER HCP ORDER
     Route: 048
     Dates: end: 20090201

REACTIONS (3)
  - DIZZINESS [None]
  - DRUG WITHDRAWAL SYNDROME [None]
  - VERTIGO [None]
